FAERS Safety Report 10718801 (Version 1)
Quarter: 2015Q1

REPORT INFORMATION
  Report Type: Spontaneous
  Country: US (occurrence: US)
  Receive Date: 20150119
  Receipt Date: 20150119
  Transmission Date: 20150721
  Serious: No
  Sender: FDA-Public Use
  Company Number: US-UNITED THERAPEUTICS-UNT-2014-005228

PATIENT
  Age: 43 Year
  Sex: Female

DRUGS (1)
  1. TYVASO [Suspect]
     Active Substance: TREPROSTINIL
     Indication: PULMONARY ARTERIAL HYPERTENSION
     Dosage: 18-54 MICROGRAMS, QID

REACTIONS (7)
  - Tooth abscess [Unknown]
  - Oedema mucosal [Unknown]
  - Infection [Unknown]
  - Drug dose omission [Unknown]
  - Pyrexia [Unknown]
  - Heart rate increased [Unknown]
  - Oral pain [Unknown]

NARRATIVE: CASE EVENT DATE: 20140731
